FAERS Safety Report 6614001-6 (Version None)
Quarter: 2010Q1

REPORT INFORMATION
  Report Type: 
  Country: None (occurrence: None)
  Receive Date: 20100304
  Receipt Date: 20100218
  Transmission Date: 20100710
  Serious: No
  Sender: FDA-Public Use
  Company Number: US-JNJFOC-20100209678

PATIENT
  Sex: Female
  Weight: 86.18 kg

DRUGS (10)
  1. DURAGESIC-100 [Suspect]
     Indication: FIBROMYALGIA
     Dosage: 100UG EVERY 72 HOURS
     Route: 062
  2. DURAGESIC-100 [Suspect]
     Indication: BACK PAIN
     Dosage: 100UG EVERY 72 HOURS
     Route: 062
  3. DURAGESIC-100 [Suspect]
     Dosage: 100UG EVERY 48 HOURS
     Route: 062
  4. DURAGESIC-100 [Suspect]
     Dosage: 100UG EVERY 48 HOURS
     Route: 062
  5. LAMICTAL [Concomitant]
     Indication: BIPOLAR DISORDER
     Route: 048
  6. LAMICTAL [Concomitant]
     Dosage: 200MG HALF ONCE DAY
     Route: 048
  7. GEODON [Concomitant]
     Indication: BIPOLAR DISORDER
     Route: 048
  8. ATENOLOL [Concomitant]
     Indication: HYPERTENSION
     Route: 048
  9. OXYCODONE HCL [Concomitant]
     Indication: PAIN
     Dosage: 10 MG/325 MG
     Route: 048
  10. CLONAZEPAM [Concomitant]
     Indication: PANIC DISORDER
     Route: 048

REACTIONS (5)
  - FEELING ABNORMAL [None]
  - MALAISE [None]
  - PRODUCT QUALITY ISSUE [None]
  - WEIGHT DECREASED [None]
  - WRONG TECHNIQUE IN DRUG USAGE PROCESS [None]
